FAERS Safety Report 9425343 (Version 2)
Quarter: 2013Q3

REPORT INFORMATION
  Report Type: Spontaneous
  Country: US (occurrence: US)
  Receive Date: 20130725
  Receipt Date: 20130812
  Transmission Date: 20140515
  Serious: Yes (Other)
  Sender: FDA-Public Use
  Company Number: JPI-P-033800

PATIENT
  Age: 36 Year
  Sex: Female

DRUGS (7)
  1. XYREM (500 MG/ML SOLUTION)(SODIUM OXYBATE) [Suspect]
     Indication: INSOMNIA
     Dosage: ( 4.5 GM, 2 IN 1 D)
     Route: 048
     Dates: start: 20100519
  2. B12 [Concomitant]
  3. VITAMIN D [Concomitant]
  4. NORTRIPTYLINE [Concomitant]
  5. OXYCODONE/ACETAMINOPHEN (ENDOCET) [Concomitant]
  6. INDOMETHACIN [Concomitant]
  7. SUMATREL [Concomitant]

REACTIONS (11)
  - Chronic fatigue syndrome [None]
  - Immunodeficiency [None]
  - Bedridden [None]
  - Autoimmune disorder [None]
  - Upper respiratory tract infection [None]
  - Urinary tract infection [None]
  - Pharyngitis [None]
  - Sinusitis [None]
  - Bronchitis [None]
  - Cervical radiculopathy [None]
  - Insomnia [None]
